FAERS Safety Report 14946105 (Version 1)
Quarter: 2018Q2

REPORT INFORMATION
  Report Type: Report from Study
  Country: None (occurrence: FR)
  Receive Date: 20180529
  Receipt Date: 20180529
  Transmission Date: 20180711
  Serious: Yes (Other)
  Sender: FDA-Public Use
  Company Number: FR-ABBVIE-18K-056-2370034-00

PATIENT
  Age: 78 Year
  Sex: Female

DRUGS (1)
  1. DUODOPA [Suspect]
     Active Substance: CARBIDOPA\LEVODOPA
     Indication: PARKINSON^S DISEASE
     Dosage: MD 7ML;?CONT FLOW 5ML 7:30AM TO 12:30AM;?CONT FLOW 2.5ML 12:30AM TO 8:30PM;?EXTRA 3 ML
     Route: 050
     Dates: start: 20170505

REACTIONS (1)
  - Cataract [Unknown]
